FAERS Safety Report 7401024-2 (Version None)
Quarter: 2011Q2

REPORT INFORMATION
  Report Type: 
  Country: None (occurrence: None)
  Receive Date: 20110407
  Receipt Date: 20110401
  Transmission Date: 20111010
  Serious: Yes (Hospitalization)
  Sender: FDA-Public Use
  Company Number: IT-PFIZER INC-2010106867

PATIENT
  Age: 37 Year
  Sex: Female

DRUGS (4)
  1. SUPRAX [Suspect]
     Indication: ACUTE TONSILLITIS
     Dosage: UNK
     Dates: start: 20100719, end: 20100723
  2. ZITHROMAX [Suspect]
     Indication: ACUTE TONSILLITIS
     Dosage: UNK
     Dates: start: 20100719, end: 20100723
  3. VELAMOX [Concomitant]
     Indication: ACUTE TONSILLITIS
     Dosage: UNK
     Dates: start: 20100716, end: 20100718
  4. IBRUPROFEN [Suspect]
     Indication: ACUTE TONSILLITIS
     Dosage: UNK
     Dates: start: 20100719, end: 20100723

REACTIONS (1)
  - HENOCH-SCHONLEIN PURPURA [None]
